FAERS Safety Report 25789781 (Version 1)
Quarter: 2025Q3

REPORT INFORMATION
  Report Type: Spontaneous
  Country: JP (occurrence: JP)
  Receive Date: 20250911
  Receipt Date: 20250911
  Transmission Date: 20251020
  Serious: Yes (Hospitalization, Other)
  Sender: TAKEDA
  Company Number: JP-TAKEDA-2025TUS079296

PATIENT
  Age: 6 Decade
  Sex: Female

DRUGS (7)
  1. LIALDA [Suspect]
     Active Substance: MESALAMINE
     Indication: Colitis ulcerative
  2. BUDESONIDE [Suspect]
     Active Substance: BUDESONIDE
     Indication: Product used for unknown indication
  3. OMVOH [Concomitant]
     Active Substance: MIRIKIZUMAB-MRKZ
  4. BUDESONIDE [Concomitant]
     Active Substance: BUDESONIDE
  5. PREDONINE [Concomitant]
     Active Substance: PREDNISOLONE
     Dosage: 50 MILLIGRAM, QD
  6. PREDONINE [Concomitant]
     Active Substance: PREDNISOLONE
     Dosage: 30 MILLIGRAM, QD
  7. SIMPONI [Concomitant]
     Active Substance: GOLIMUMAB

REACTIONS (7)
  - Fall [Unknown]
  - Femoral neck fracture [Unknown]
  - Pyoderma gangrenosum [Unknown]
  - Haematochezia [Unknown]
  - Abdominal pain [Unknown]
  - Colitis ulcerative [Unknown]
  - Diarrhoea [Unknown]
